FAERS Safety Report 9433467 (Version 1)
Quarter: 2013Q3

REPORT INFORMATION
  Report Type: Spontaneous
  Country: US (occurrence: US)
  Receive Date: 20130731
  Receipt Date: 20130731
  Transmission Date: 20140515
  Serious: Yes (Hospitalization)
  Sender: FDA-Public Use
  Company Number: US-ASTRAZENECA-2013SE55994

PATIENT
  Sex: Male

DRUGS (1)
  1. BRILINTA [Suspect]
     Indication: STENT PLACEMENT
     Dosage: UNKNOWN
     Route: 048

REACTIONS (3)
  - Myocardial infarction [Unknown]
  - Thrombosis in device [Unknown]
  - Intentional drug misuse [Unknown]
